FAERS Safety Report 21085208 (Version 1)
Quarter: 2022Q3

REPORT INFORMATION
  Report Type: Spontaneous
  Country: US (occurrence: US)
  Receive Date: 20220714
  Receipt Date: 20220714
  Transmission Date: 20221026
  Serious: Yes (Hospitalization)
  Sender: FDA-Public Use
  Company Number: US-BRISTOL-MYERS SQUIBB COMPANY-2022-070587

PATIENT
  Age: 80 Year
  Sex: Female

DRUGS (2)
  1. REVLIMID [Suspect]
     Active Substance: LENALIDOMIDE
     Indication: Plasma cell myeloma
     Dosage: DOSE : (1) CAPSULE;     FREQ : EVERY DAY X 21 DAYS
     Route: 048
     Dates: start: 20220616
  2. EMPLICITI [Concomitant]
     Active Substance: ELOTUZUMAB
     Indication: Product used for unknown indication
     Route: 065

REACTIONS (2)
  - Musculoskeletal stiffness [Unknown]
  - Fatigue [Unknown]
